FAERS Safety Report 14664510 (Version 2)
Quarter: 2018Q1

REPORT INFORMATION
  Report Type: Spontaneous
  Country: FR (occurrence: FR)
  Receive Date: 20180321
  Receipt Date: 20180328
  Transmission Date: 20180509
  Serious: Yes (Other)
  Sender: FDA-Public Use
  Company Number: FR-PFIZER INC-2018111264

PATIENT
  Age: 70 Year
  Sex: Female
  Weight: 59 kg

DRUGS (14)
  1. SERESTA [Concomitant]
     Active Substance: OXAZEPAM
     Dosage: 5 MG, UNK
  2. FLUCONAZOLE. [Suspect]
     Active Substance: FLUCONAZOLE
     Dosage: 50 MG, UNK
     Route: 048
  3. FUNGIZONE [Suspect]
     Active Substance: AMPHOTERICIN B
     Dosage: UNK
     Dates: start: 20171012, end: 20171031
  4. TAHOR [Concomitant]
     Active Substance: ATORVASTATIN CALCIUM
     Dosage: 10 MG, UNK
  5. FORLAX [Concomitant]
     Active Substance: POLYETHYLENE GLYCOL 4000
     Dosage: 2 DOSAGE FORMS (DF), ONCE IN THE MORNING
  6. LEXOMIL [Concomitant]
     Active Substance: BROMAZEPAM
     Dosage: 1 DOSAGE FORM (DF), AS NEEDED IN THE EVENING FROM TIME TO TIME
  7. PANTOPRAZOLE [Concomitant]
     Active Substance: PANTOPRAZOLE
     Dosage: 20 MG, UNK
  8. IXPRIM [Concomitant]
     Active Substance: ACETAMINOPHEN\TRAMADOL HYDROCHLORIDE
     Dosage: 1 DOSAGE FORM (DF), THREE TIMES DAILY (IN THE MORNING, NOON AND EVENING)
  9. TRAMADOL. [Concomitant]
     Active Substance: TRAMADOL
     Dosage: UNK
  10. OFLOXACIN. [Suspect]
     Active Substance: OFLOXACIN
     Indication: ABSCESS
     Dosage: 400 MG, ONCE DAILY
     Route: 048
     Dates: start: 20170921, end: 20170926
  11. TOPALGIC [Concomitant]
     Dosage: 1-3 TABLETS
  12. OGAST [Concomitant]
     Active Substance: LANSOPRAZOLE
     Dosage: 1 DOSAGE FORM (DF), IN THE EVENING
  13. SULFARLEM [Concomitant]
     Active Substance: ANETHOLTRITHION
     Dosage: 1 DOSAGE FORM (DF), THREE TIMES DAILY (IN THE MORNING, NOON AND EVENING)
  14. IMOVANE [Concomitant]
     Active Substance: ZOPICLONE
     Dosage: 1 DOSAGE FORM (DF), ONCE A DAY

REACTIONS (15)
  - Swollen tongue [Unknown]
  - Gastrointestinal disorder [Not Recovered/Not Resolved]
  - Feeding disorder [Not Recovered/Not Resolved]
  - Tongue ulceration [Not Recovered/Not Resolved]
  - Burn oesophageal [Recovering/Resolving]
  - Tongue discolouration [Unknown]
  - Ageusia [Not Recovered/Not Resolved]
  - Paraesthesia oral [Not Recovered/Not Resolved]
  - Pain [Not Recovered/Not Resolved]
  - Aptyalism [Not Recovered/Not Resolved]
  - Dehydration [Not Recovered/Not Resolved]
  - Dysphagia [Not Recovered/Not Resolved]
  - Dysgeusia [Not Recovered/Not Resolved]
  - Swelling face [Unknown]
  - Leukoplakia oral [Recovering/Resolving]

NARRATIVE: CASE EVENT DATE: 20170922
